FAERS Safety Report 16222246 (Version 2)
Quarter: 2019Q2

REPORT INFORMATION
  Report Type: Spontaneous
  Country: DE (occurrence: DE)
  Receive Date: 20190422
  Receipt Date: 20190522
  Transmission Date: 20190711
  Serious: Yes (Hospitalization, Other)
  Sender: FDA-Public Use
  Company Number: PHHY2019DE090130

PATIENT
  Sex: Female
  Weight: 60 kg

DRUGS (3)
  1. SANDOSTATIN LAR DEPOT [Suspect]
     Active Substance: OCTREOTIDE ACETATE
     Indication: NEUROENDOCRINE CARCINOMA
     Dosage: 30 MG, QMO
     Route: 030
     Dates: start: 20190206
  2. EPIRUBICIN [Suspect]
     Active Substance: EPIRUBICIN
     Indication: NEUROENDOCRINE TUMOUR
  3. EPIRUBICIN [Suspect]
     Active Substance: EPIRUBICIN
     Indication: HEPATIC FAILURE
     Dosage: 50 MG, ONCE/SINGLE
     Route: 013
     Dates: start: 20190227, end: 20190227

REACTIONS (4)
  - Nausea [Recovered/Resolved]
  - Pain [Recovered/Resolved]
  - Pyrexia [Recovered/Resolved]
  - Post embolisation syndrome [Unknown]

NARRATIVE: CASE EVENT DATE: 20190228
